FAERS Safety Report 6738364-6 (Version None)
Quarter: 2010Q2

REPORT INFORMATION
  Report Type: 
  Country: None (occurrence: None)
  Receive Date: 20100524
  Receipt Date: 20100513
  Transmission Date: 20101027
  Serious: Yes (Other)
  Sender: FDA-Public Use
  Company Number: US-JNJFOC-20100401924

PATIENT
  Sex: Male
  Weight: 149.69 kg

DRUGS (13)
  1. STELARA [Suspect]
     Indication: PSORIASIS
     Route: 058
  2. STELARA [Suspect]
     Route: 058
  3. ACETYLSALICYLIC ACID [Concomitant]
  4. ANTI-HYPERTENSIVE [Concomitant]
     Indication: HYPERTENSION
  5. COUMADIN [Concomitant]
  6. ALLOPURINOL [Concomitant]
  7. FUROSEMIDE [Concomitant]
  8. ATORVASTATIN [Concomitant]
  9. GLIMEPIRIDE [Concomitant]
  10. CLOPIDOGREL [Concomitant]
  11. IRBESARTAN AND HYDROCHLOROTHIAZIDE [Concomitant]
  12. METFORMIN HCL [Concomitant]
  13. AMIODARONE [Concomitant]

REACTIONS (1)
  - BONE NEOPLASM [None]
